FAERS Safety Report 16462209 (Version 2)
Quarter: 2025Q3

REPORT INFORMATION
  Report Type: Spontaneous
  Country: EU (occurrence: EU)
  Receive Date: 20190621
  Receipt Date: 20250802
  Transmission Date: 20251021
  Serious: Yes (Hospitalization, Other)
  Sender: AUROBINDO
  Company Number: EU-AUROBINDO-AUR-APL-2019-034831

PATIENT
  Age: 33 Year
  Sex: Female

DRUGS (2)
  1. METFORMIN [Suspect]
     Active Substance: METFORMIN HYDROCHLORIDE
     Indication: Gestational diabetes
     Route: 065
  2. METHYLDOPA [Concomitant]
     Active Substance: METHYLDOPA
     Indication: Hypertension
     Route: 065

REACTIONS (6)
  - Phaeochromocytoma [Recovered/Resolved]
  - Chest pain [Unknown]
  - Orthostatic hypotension [Unknown]
  - Maternal exposure during pregnancy [Recovered/Resolved]
  - Drug effective for unapproved indication [Recovered/Resolved]
  - Product use in unapproved indication [Unknown]
